FAERS Safety Report 6518397-5 (Version None)
Quarter: 2009Q4

REPORT INFORMATION
  Report Type: 
  Country: None (occurrence: None)
  Receive Date: 20091225
  Receipt Date: 20091214
  Transmission Date: 20100525
  Serious: Yes (Other)
  Sender: FDA-Public Use
  Company Number: PHHY2009GB56952

PATIENT
  Age: 72 Year
  Sex: Male
  Weight: 77 kg

DRUGS (1)
  1. CLOZAPINE [Suspect]
     Dosage: UNK
     Dates: start: 20030302, end: 20070309

REACTIONS (2)
  - ABDOMINAL REBOUND TENDERNESS [None]
  - AORTIC DISORDER [None]
